FAERS Safety Report 16899215 (Version 4)
Quarter: 2019Q4

REPORT INFORMATION
  Report Type: Spontaneous
  Country: US (occurrence: US)
  Receive Date: 20191009
  Receipt Date: 20191107
  Transmission Date: 20200122
  Serious: Yes (Other)
  Sender: FDA-Public Use
  Company Number: US-PFIZER INC-2019433957

PATIENT
  Sex: Male

DRUGS (1)
  1. CHANTIX [Suspect]
     Active Substance: VARENICLINE TARTRATE
     Indication: ELECTRONIC CIGARETTE USER
     Dosage: UNK

REACTIONS (12)
  - Agitation [Unknown]
  - Nightmare [Unknown]
  - Nausea [Unknown]
  - Restlessness [Unknown]
  - Panic attack [Unknown]
  - Vomiting [Unknown]
  - Serotonin syndrome [Unknown]
  - Hallucination [Unknown]
  - Memory impairment [Unknown]
  - Personality change [Unknown]
  - Feeling hot [Unknown]
  - Paranoia [Unknown]
